FAERS Safety Report 4347850-8 (Version None)
Quarter: 2004Q2

REPORT INFORMATION
  Report Type: 
  Country: None (occurrence: None)
  Receive Date: 20040422
  Receipt Date: 20040408
  Transmission Date: 20050107
  Serious: No
  Sender: FDA-Public Use
  Company Number: 0410006

PATIENT
  Sex: Female

DRUGS (1)
  1. ORFADIN [Suspect]
     Indication: AMINO ACID LEVEL INCREASED
     Dosage: 4 MG BID ORAL
     Route: 048
     Dates: start: 20040325, end: 20040407

REACTIONS (1)
  - GENERAL PHYSICAL HEALTH DETERIORATION [None]
